FAERS Safety Report 18879987 (Version 4)
Quarter: 2021Q4

REPORT INFORMATION
  Report Type: Report from Study
  Country: US (occurrence: US)
  Receive Date: 20210211
  Receipt Date: 20211222
  Transmission Date: 20220303
  Serious: No
  Sender: FDA-Public Use
  Company Number: NVSC2021US033132

PATIENT
  Sex: Female

DRUGS (1)
  1. ENTRESTO [Suspect]
     Active Substance: SACUBITRIL\VALSARTAN
     Indication: Breast cancer metastatic
     Dosage: 24.26 MG, BID
     Route: 048

REACTIONS (5)
  - Memory impairment [Unknown]
  - Polyuria [Unknown]
  - Dyspnoea [Unknown]
  - Fatigue [Unknown]
  - Product use in unapproved indication [Unknown]
